FAERS Safety Report 7225065-3 (Version None)
Quarter: 2011Q1

REPORT INFORMATION
  Report Type: 
  Country: None (occurrence: None)
  Receive Date: 20110107
  Receipt Date: 20110107
  Transmission Date: 20110831
  Serious: Yes (Other)
  Sender: FDA-Public Use
  Company Number: None

PATIENT
  Age: 61 Year
  Sex: Male
  Weight: 83.9154 kg

DRUGS (1)
  1. AMPHETAMINE AND DEXTROAMPHETAMINE SALTS [Suspect]
     Indication: ATTENTION DEFICIT/HYPERACTIVITY DISORDER
     Dosage: 1 TABLET TWICE PER DAY PO
     Route: 048
     Dates: start: 20101217, end: 20101231

REACTIONS (1)
  - DRUG INEFFECTIVE [None]
